APPROVED DRUG PRODUCT: DESFERAL
Active Ingredient: DEFEROXAMINE MESYLATE
Strength: 2GM/VIAL **Federal Register determination that product was not discontinued or withdrawn for safety or effectiveness reasons**
Dosage Form/Route: INJECTABLE;INJECTION
Application: N016267 | Product #002
Applicant: MITEM PHARMA INC
Approved: May 25, 2000 | RLD: Yes | RS: No | Type: DISCN